FAERS Safety Report 14943004 (Version 8)
Quarter: 2018Q3

REPORT INFORMATION
  Report Type: Report from Study
  Country: FR (occurrence: FR)
  Receive Date: 20180528
  Receipt Date: 20180802
  Transmission Date: 20181010
  Serious: Yes (Hospitalization)
  Sender: FDA-Public Use
  Company Number: FR-ROCHE-2127866

PATIENT
  Age: 76 Year
  Sex: Female
  Weight: 45 kg

DRUGS (32)
  1. ATEZOLIZUMAB. [Suspect]
     Active Substance: ATEZOLIZUMAB
     Dosage: REINTRODUCED FOR CYCLE 2, DAY 1.
     Route: 042
     Dates: start: 20180620
  2. INNOHEP [Concomitant]
     Active Substance: TINZAPARIN SODIUM
  3. TRIFLUCAN [Concomitant]
     Active Substance: FLUCONAZOLE
     Indication: CANDIDA INFECTION
     Route: 065
     Dates: start: 20180527
  4. VANCOMYCINE [Concomitant]
     Active Substance: VANCOMYCIN
     Route: 065
     Dates: start: 20180629, end: 20180701
  5. RITUXIMAB. [Suspect]
     Active Substance: RITUXIMAB
     Indication: MARGINAL ZONE LYMPHOMA
     Dosage: DATE OF MOST RECENT DOSE PRIOR TO EVENT ONSET ON 15/MAY/2018 AT 11.11, THIS WAS THE LAST DOSE PRIOR
     Route: 042
     Dates: start: 20180515, end: 20180515
  6. SPASFON (FRANCE) [Concomitant]
     Active Substance: PHLOROGLUCINOL\1,3,5-TRIMETHOXYBENZENE
  7. MAG 2 (FRANCE) [Concomitant]
     Route: 065
     Dates: start: 20180502
  8. KABIVEN [Concomitant]
     Active Substance: AMINO ACIDS\ANHYDROUS DEXTROSE\CALCIUM CHLORIDE\MAGNESIUM SULFATE HEPTAHYDRATE\POTASSIUM CHLORIDE\SODIUM ACETATE\SODIUM GLYCEROPHOSPHATE ANHYDROUS\SOYBEAN OIL
     Indication: PARENTERAL NUTRITION
     Route: 065
     Dates: start: 20180613
  9. BACTRIM [Concomitant]
     Active Substance: SULFAMETHOXAZOLE\TRIMETHOPRIM
     Route: 065
     Dates: start: 20180604
  10. LANSOPRAZOLE. [Concomitant]
     Active Substance: LANSOPRAZOLE
     Indication: PROPHYLAXIS
     Route: 065
     Dates: start: 20180320
  11. MIRTAZAPINE. [Concomitant]
     Active Substance: MIRTAZAPINE
     Indication: DEPRESSION
     Route: 065
     Dates: start: 20180604
  12. ATEZOLIZUMAB. [Suspect]
     Active Substance: ATEZOLIZUMAB
     Indication: MARGINAL ZONE LYMPHOMA
     Dosage: DATE OF MOST RECENT DOSE PRIOR TO EVENT ONSET ON 15/MAY/2018 AT 14:54. MOST RECENT DOSE PRIOR TO INT
     Route: 042
     Dates: start: 20180515, end: 20180515
  13. TIORFAN [Concomitant]
     Active Substance: RACECADOTRIL
  14. SMECTA [Concomitant]
     Active Substance: MONTMORILLONITE
  15. NORCET [Concomitant]
     Indication: DEPRESSION
     Route: 065
     Dates: start: 20180604
  16. TRIFLUCAN [Concomitant]
     Active Substance: FLUCONAZOLE
     Indication: ORAL CANDIDIASIS
     Route: 065
     Dates: start: 20180527
  17. MERONEM [Concomitant]
     Active Substance: MEROPENEM
     Indication: SEPSIS
     Route: 065
     Dates: start: 20180701, end: 20180707
  18. TAZOCILLINE [Concomitant]
     Active Substance: PIPERACILLIN SODIUM\TAZOBACTAM SODIUM
     Indication: SEPSIS
     Route: 065
     Dates: start: 20180629, end: 20180701
  19. AMIKLIN [Concomitant]
     Active Substance: AMIKACIN SULFATE
     Indication: SEPSIS
     Route: 065
     Dates: start: 20180629, end: 20180629
  20. DIFFU K [Concomitant]
     Active Substance: POTASSIUM CHLORIDE
  21. KALEORID [Concomitant]
     Active Substance: POTASSIUM CHLORIDE
  22. TEGELINE [Concomitant]
     Active Substance: HUMAN IMMUNOGLOBULIN G
     Indication: SECONDARY IMMUNODEFICIENCY
     Route: 065
     Dates: start: 20180607
  23. ZELITREX [Concomitant]
     Active Substance: VALACYCLOVIR HYDROCHLORIDE
     Route: 065
     Dates: start: 20180604
  24. VANCOMYCINE [Concomitant]
     Active Substance: VANCOMYCIN
     Indication: SEPSIS
     Route: 065
     Dates: start: 20180629, end: 20180701
  25. CIFLOX (FRANCE) [Concomitant]
     Active Substance: CIPROFLOXACIN
     Indication: SEPSIS
     Route: 065
     Dates: start: 20180629, end: 20180701
  26. INEXIUM [Concomitant]
     Active Substance: ESOMEPRAZOLE
  27. PARACETAMOL [Concomitant]
     Active Substance: ACETAMINOPHEN
     Route: 065
     Dates: start: 20180604
  28. AMIKACINE [Concomitant]
     Active Substance: AMIKACIN
     Indication: SEPSIS
     Route: 065
     Dates: start: 20180629, end: 20180701
  29. EPREX [Concomitant]
     Active Substance: ERYTHROPOIETIN
  30. LEDERFOLINE [Concomitant]
     Active Substance: LEUCOVORIN CALCIUM
     Route: 065
     Dates: start: 20180604
  31. IDEOS [Concomitant]
     Active Substance: CALCIUM CARBONATE\CHOLECALCIFEROL
     Route: 065
     Dates: start: 20180604
  32. OXYNORM [Concomitant]
     Active Substance: OXYCODONE HYDROCHLORIDE
     Route: 065
     Dates: start: 20180604

REACTIONS (1)
  - Febrile neutropenia [Recovered/Resolved]

NARRATIVE: CASE EVENT DATE: 20180521
